FAERS Safety Report 24178821 (Version 1)
Quarter: 2024Q3

REPORT INFORMATION
  Report Type: Report from Study
  Country: TR (occurrence: TR)
  Receive Date: 20240806
  Receipt Date: 20240806
  Transmission Date: 20241017
  Serious: Yes (Death, Life-Threatening, Other)
  Sender: PFIZER
  Company Number: TR-PFIZER INC-202400228965

PATIENT
  Age: 55 Year
  Sex: Male

DRUGS (2)
  1. TIGECYCLINE [Suspect]
     Active Substance: TIGECYCLINE
     Indication: Pneumonia
     Dosage: 2*50 MG 6 D
     Route: 042
  2. MEROPENEM [Suspect]
     Active Substance: MEROPENEM
     Indication: Pneumonia
     Dosage: 3*1 GR 2 D

REACTIONS (1)
  - Drug ineffective [Fatal]
